FAERS Safety Report 14812491 (Version 1)
Quarter: 2018Q2

REPORT INFORMATION
  Report Type: Report from Study
  Country: US (occurrence: US)
  Receive Date: 20180425
  Receipt Date: 20180425
  Transmission Date: 20180711
  Serious: No
  Sender: FDA-Public Use
  Company Number: US-AMGEN-USASL2018029492

PATIENT
  Age: 55 Year
  Sex: Female

DRUGS (1)
  1. REPATHA [Suspect]
     Active Substance: EVOLOCUMAB
     Indication: HYPERLIPIDAEMIA
     Dosage: 140 MG, Q2WK
     Route: 065
     Dates: start: 20180101

REACTIONS (11)
  - Oropharyngeal pain [Not Recovered/Not Resolved]
  - Nasal congestion [Unknown]
  - Pharyngeal erythema [Unknown]
  - Pain in extremity [Unknown]
  - Capillary fragility [Unknown]
  - Rhinorrhoea [Not Recovered/Not Resolved]
  - Back pain [Unknown]
  - Bone pain [Recovered/Resolved]
  - Pharyngeal mass [Not Recovered/Not Resolved]
  - Arthralgia [Unknown]
  - Oral papule [Not Recovered/Not Resolved]

NARRATIVE: CASE EVENT DATE: 2018
